FAERS Safety Report 9796155 (Version 3)
Quarter: 2014Q1

REPORT INFORMATION
  Report Type: Spontaneous
  Country: JP (occurrence: JP)
  Receive Date: 20140103
  Receipt Date: 20140219
  Transmission Date: 20141002
  Serious: Yes (Hospitalization, Other)
  Sender: FDA-Public Use
  Company Number: JP-BAXTER-2013BAX053199

PATIENT
  Age: 41 Year
  Sex: Female

DRUGS (13)
  1. ENDOXAN [Suspect]
     Indication: BREAST CANCER
     Route: 048
     Dates: start: 2010, end: 20131201
  2. ENDOXAN [Suspect]
     Route: 048
     Dates: start: 20131206, end: 20131211
  3. XELODA [Suspect]
     Indication: BREAST CANCER
     Route: 048
     Dates: start: 2010, end: 20131201
  4. XELODA [Suspect]
     Route: 048
     Dates: start: 20131206, end: 20131211
  5. PYDOXAL [Concomitant]
     Indication: NEUROPATHY PERIPHERAL
     Route: 048
     Dates: start: 2010
  6. METOPROLOL TARTRATE [Concomitant]
     Indication: HYPERTENSION
     Route: 048
     Dates: start: 2007
  7. LASIX [Concomitant]
     Indication: HYPERTENSION
     Route: 048
     Dates: start: 2007
  8. DIOVAN [Concomitant]
     Indication: HYPERTENSION
     Route: 048
  9. ALDACTONE A [Concomitant]
     Indication: HYPERTENSION
     Route: 048
     Dates: start: 2007
  10. NORVASC [Concomitant]
     Indication: HYPERTENSION
     Route: 048
  11. SELBEX [Concomitant]
     Indication: GASTRITIS
     Route: 048
     Dates: start: 2007, end: 20131201
  12. ALLEGRA [Concomitant]
     Indication: PRURITUS
     Route: 048
     Dates: start: 2007, end: 20131201
  13. GASDOCK [Concomitant]
     Indication: PRODUCT USED FOR UNKNOWN INDICATION
     Route: 041
     Dates: start: 20131201, end: 20131201

REACTIONS (3)
  - Asthma [Recovering/Resolving]
  - Bronchopneumonia [Recovering/Resolving]
  - Bone marrow failure [Not Recovered/Not Resolved]
